FAERS Safety Report 13709380 (Version 2)
Quarter: 2017Q3

REPORT INFORMATION
  Report Type: Spontaneous
  Country: JP (occurrence: JP)
  Receive Date: 20170703
  Receipt Date: 20170725
  Transmission Date: 20171127
  Serious: Yes (Life-Threatening, Hospitalization, Other)
  Sender: FDA-Public Use
  Company Number: JP-AMGEN-JPNSP2017100324

PATIENT
  Age: 74 Year
  Sex: Male

DRUGS (13)
  1. ENBREL [Suspect]
     Active Substance: ETANERCEPT
     Indication: RHEUMATOID ARTHRITIS
     Dosage: 50 MG, WEEKLY
     Route: 058
     Dates: end: 20170514
  2. GEMZAR [Suspect]
     Active Substance: GEMCITABINE HYDROCHLORIDE
     Dosage: 1600 MG (95%)
     Route: 041
     Dates: start: 20170201
  3. GEMZAR [Suspect]
     Active Substance: GEMCITABINE HYDROCHLORIDE
     Dosage: 1600 MG (95%)
     Route: 041
     Dates: start: 20170307
  4. METHYCOBAL [Concomitant]
     Active Substance: METHYLCOBALAMIN
     Indication: RHEUMATOID ARTHRITIS
     Dosage: 1500 UG, DAILY
     Route: 048
  5. RHEUMATREX [Suspect]
     Active Substance: METHOTREXATE SODIUM
     Indication: RHEUMATOID ARTHRITIS
     Dosage: UNK
     Route: 048
  6. FOLIAMIN [Concomitant]
     Active Substance: FOLIC ACID
     Indication: RHEUMATOID ARTHRITIS
     Dosage: 5 MG, WEEKLY
     Route: 048
  7. LOXOPROFEN [Concomitant]
     Active Substance: LOXOPROFEN
     Indication: RHEUMATOID ARTHRITIS
     Dosage: 180 MG, DAILY
     Route: 048
  8. TEPRENONE [Concomitant]
     Active Substance: TEPRENONE
     Indication: RHEUMATOID ARTHRITIS
     Dosage: 150 MG, DAILY
     Route: 048
  9. BENET [Concomitant]
     Active Substance: RISEDRONATE SODIUM
     Indication: OSTEOPOROSIS
     Dosage: 75 MG, MONTHLY
     Route: 048
  10. GEMZAR [Suspect]
     Active Substance: GEMCITABINE HYDROCHLORIDE
     Dosage: 1600 MG (95%)
     Route: 041
     Dates: start: 20170315
  11. GEMZAR [Suspect]
     Active Substance: GEMCITABINE HYDROCHLORIDE
     Indication: BLADDER CANCER
     Dosage: 1600 MG (95%)
     Route: 041
     Dates: start: 20170124
  12. GEMZAR [Suspect]
     Active Substance: GEMCITABINE HYDROCHLORIDE
     Dosage: 1600 MG (95%)
     Route: 041
     Dates: start: 20170322, end: 20170322
  13. PREDNISOLONE. [Concomitant]
     Active Substance: PREDNISOLONE
     Indication: RHEUMATOID ARTHRITIS
     Dosage: 2 MG, DAILY
     Route: 048

REACTIONS (9)
  - Metastases to lymph nodes [Unknown]
  - Pancytopenia [Recovered/Resolved]
  - Hydronephrosis [Unknown]
  - Herpes zoster [Not Recovered/Not Resolved]
  - Platelet count decreased [Unknown]
  - Influenza [Unknown]
  - Eczema [Unknown]
  - Bladder cancer [Not Recovered/Not Resolved]
  - Pyelonephritis acute [Unknown]

NARRATIVE: CASE EVENT DATE: 20161114
